FAERS Safety Report 16883648 (Version 1)
Quarter: 2019Q4

REPORT INFORMATION
  Report Type: Spontaneous
  Country: US (occurrence: US)
  Receive Date: 20191004
  Receipt Date: 20191004
  Transmission Date: 20200122
  Serious: No
  Sender: FDA-Public Use
  Company Number: US-SUNOVION-2019SUN003966

PATIENT
  Sex: Male

DRUGS (1)
  1. LATUDA [Suspect]
     Active Substance: LURASIDONE HYDROCHLORIDE
     Indication: AMNESIA
     Dosage: UNK
     Route: 048
     Dates: start: 20190922

REACTIONS (4)
  - Abnormal dreams [Recovered/Resolved]
  - Drooling [Recovered/Resolved]
  - Hypersomnia [Recovered/Resolved]
  - Off label use [Unknown]
